FAERS Safety Report 23884831 (Version 1)
Quarter: 2024Q2

REPORT INFORMATION
  Report Type: Spontaneous
  Country: US (occurrence: None)
  Receive Date: 20240522
  Receipt Date: 20240522
  Transmission Date: 20240716
  Serious: No
  Sender: FDA-Public Use
  Company Number: None

PATIENT

DRUGS (1)
  1. AMITRIPTYLINE HYDROCHLORIDE [Suspect]
     Active Substance: AMITRIPTYLINE HYDROCHLORIDE

REACTIONS (7)
  - Product dispensing error [None]
  - Wrong product administered [None]
  - Illness [None]
  - Vomiting [None]
  - Near death experience [None]
  - Tremor [None]
  - Palpitations [None]

NARRATIVE: CASE EVENT DATE: 20240220
